FAERS Safety Report 10038483 (Version 1)
Quarter: 2014Q1

REPORT INFORMATION
  Report Type: Spontaneous
  Country: US (occurrence: US)
  Receive Date: 20140326
  Receipt Date: 20140326
  Transmission Date: 20141002
  Serious: No
  Sender: FDA-Public Use
  Company Number: US-B.I. PHARMACEUTICALS,INC./RIDGEFIELD-2014-BI-12489BP

PATIENT
  Age: 64 Year
  Sex: Female

DRUGS (14)
  1. SPIRIVA [Suspect]
     Indication: CHRONIC OBSTRUCTIVE PULMONARY DISEASE
     Dosage: 18 MCG
     Route: 055
     Dates: start: 201308
  2. PROAIR [Concomitant]
     Route: 055
  3. NEILMED NASAL RINSE [Concomitant]
     Route: 045
  4. LOSARTAN [Concomitant]
     Route: 048
  5. AMLODIPINE [Concomitant]
     Route: 048
  6. ATENOLOL [Concomitant]
     Route: 048
  7. SIMVASTATIN [Concomitant]
     Route: 048
  8. LEVOTHYROXINE [Concomitant]
     Route: 048
  9. OMEPRAZOLE [Concomitant]
     Route: 048
  10. WELLBUTRIN [Concomitant]
     Indication: DEPRESSION
     Route: 048
  11. CHLORADIAZEPOXIDE/CLIDINIUM [Concomitant]
     Route: 048
  12. DIAZEPAM [Concomitant]
     Route: 048
  13. ZOLPIDEM [Concomitant]
     Route: 048
  14. ACYCLOVIR [Concomitant]
     Route: 048

REACTIONS (4)
  - Hearing impaired [Not Recovered/Not Resolved]
  - Nervousness [Not Recovered/Not Resolved]
  - Stress [Recovered/Resolved]
  - Constipation [Recovered/Resolved]
